FAERS Safety Report 4655730-3 (Version None)
Quarter: 2005Q2

REPORT INFORMATION
  Report Type: 
  Country: None (occurrence: None)
  Receive Date: 20050505
  Receipt Date: 20050419
  Transmission Date: 20051028
  Serious: Yes (Death, Hospitalization)
  Sender: FDA-Public Use
  Company Number: FR_050406293

PATIENT
  Age: 30 Year
  Sex: Male

DRUGS (2)
  1. ZYPREXA [Suspect]
     Indication: SCHIZOPHRENIA
     Dosage: 300 MG/1 OTHER
     Route: 050
     Dates: start: 20050208, end: 20050208
  2. XANAX (ALPRAZOLAM DUM) [Concomitant]

REACTIONS (6)
  - AREFLEXIA [None]
  - COMA [None]
  - COMPLETED SUICIDE [None]
  - INTENTIONAL MISUSE [None]
  - MULTIPLE DRUG OVERDOSE [None]
  - PNEUMONIA ASPIRATION [None]
